FAERS Safety Report 15423443 (Version 1)
Quarter: 2018Q3

REPORT INFORMATION
  Report Type: Spontaneous
  Country: US (occurrence: US)
  Receive Date: 20180925
  Receipt Date: 20180925
  Transmission Date: 20181010
  Serious: Yes (Other)
  Sender: FDA-Public Use
  Company Number: US-ACCORD-072760

PATIENT
  Age: 78 Year
  Sex: Male
  Weight: 74.84 kg

DRUGS (1)
  1. HYDROCHLOROTHIAZIDE. [Suspect]
     Active Substance: HYDROCHLOROTHIAZIDE
     Indication: PERIPHERAL SWELLING
     Dosage: STRENGTH: 12.5 MG
     Route: 048

REACTIONS (2)
  - Haemorrhage [Unknown]
  - Malaise [Unknown]
